FAERS Safety Report 13207728 (Version 2)
Quarter: 2017Q1

REPORT INFORMATION
  Report Type: Spontaneous
  Country: ES (occurrence: ES)
  Receive Date: 20170209
  Receipt Date: 20170214
  Transmission Date: 20170428
  Serious: Yes (Other)
  Sender: FDA-Public Use
  Company Number: ES-JNJFOC-20170204006

PATIENT
  Sex: Male

DRUGS (2)
  1. REMICADE [Suspect]
     Active Substance: INFLIXIMAB
     Indication: CROHN^S DISEASE
     Route: 042
  2. REMICADE [Suspect]
     Active Substance: INFLIXIMAB
     Indication: CROHN^S DISEASE
     Route: 042
     Dates: start: 2000

REACTIONS (8)
  - Psoas abscess [Unknown]
  - Vocal cord paralysis [Recovering/Resolving]
  - Infusion related reaction [Unknown]
  - Gastrointestinal stoma complication [Unknown]
  - Enterovesical fistula [Unknown]
  - Laryngeal stenosis [Recovering/Resolving]
  - Vocal cord paresis [Recovering/Resolving]
  - Crohn^s disease [Unknown]

NARRATIVE: CASE EVENT DATE: 2001
